FAERS Safety Report 6652858-3 (Version None)
Quarter: 2010Q1

REPORT INFORMATION
  Report Type: 
  Country: None (occurrence: None)
  Receive Date: 20100326
  Receipt Date: 20100322
  Transmission Date: 20100710
  Serious: Yes (Hospitalization)
  Sender: FDA-Public Use
  Company Number: US-KINGPHARMUSA00001-K201000291

PATIENT
  Sex: Female
  Weight: 66.213 kg

DRUGS (20)
  1. EMBEDA [Suspect]
     Indication: PAIN
     Dosage: 50 MG, Q12H
     Route: 048
     Dates: start: 20100216, end: 20100306
  2. EMBEDA [Suspect]
     Dosage: 30 MG, Q12H
     Route: 048
     Dates: start: 20100122, end: 20100215
  3. AVINZA [Concomitant]
     Indication: PAIN
     Dosage: 90 MG, QD
     Dates: end: 20081207
  4. AVINZA [Concomitant]
     Dosage: 120 MG, QD
     Dates: start: 20081208, end: 20100122
  5. AGGRENOX [Concomitant]
     Dosage: 25 MG, BID
  6. LASIX [Concomitant]
     Dosage: 20 MG, QD
  7. PLAQUENIL [Concomitant]
     Dosage: 200 MG, BID
  8. REGLAN [Concomitant]
     Dosage: 5 MG, TID
  9. TRAZODONE HCL [Concomitant]
     Indication: SLEEP DISORDER
     Dosage: 150 MG, QHS
  10. SOMA [Concomitant]
     Indication: BREAKTHROUGH PAIN
     Dosage: 350 MG, QHS, PRN
  11. PREDNISONE TAB [Concomitant]
     Dosage: 60 MG, QD FOR 3 DAYS
  12. PREDNISONE TAB [Concomitant]
     Dosage: 40 MG, QD FOR THREE DAYS
  13. PREMPHASE 14/14 [Concomitant]
     Dosage: 0.625 MG, QD
  14. ZANTAC [Concomitant]
     Dosage: 30 MG, QD
  15. LYRICA [Concomitant]
     Dosage: 75 MG, BID
  16. PROTONIX [Concomitant]
     Dosage: 40 MG, BID
  17. VITAMIN B COMPLEX TAB [Concomitant]
     Dosage: ONCE PER MONTH
  18. PRISTIQ [Concomitant]
     Dosage: 100 MG, QD
  19. LIPITOR [Concomitant]
     Dosage: 40 MG, QD
  20. OXYCODONE [Concomitant]
     Indication: BREAKTHROUGH PAIN
     Dosage: 30 MG, TID, PRN

REACTIONS (6)
  - ADVERSE DRUG REACTION [None]
  - DEHYDRATION [None]
  - HYPOPHAGIA [None]
  - NAUSEA [None]
  - VOMITING [None]
  - WITHDRAWAL SYNDROME [None]
